FAERS Safety Report 11448669 (Version 4)
Quarter: 2016Q3

REPORT INFORMATION
  Report Type: Report from Study
  Country: CO (occurrence: CO)
  Receive Date: 20150902
  Receipt Date: 20160808
  Transmission Date: 20161109
  Serious: Yes (Hospitalization, Other)
  Sender: FDA-Public Use
  Company Number: PHHY2015CO105963

PATIENT
  Age: 21 Year
  Sex: Male
  Weight: 59 kg

DRUGS (1)
  1. EXJADE [Suspect]
     Active Substance: DEFERASIROX
     Indication: MYELOID LEUKAEMIA
     Dosage: 10 MG/KG, QD (500 MG ONCE DAILY)
     Route: 048
     Dates: start: 20150211, end: 20150811

REACTIONS (9)
  - Underweight [Unknown]
  - Urethral pain [Unknown]
  - Pneumonia [Unknown]
  - Blood urine present [Unknown]
  - Herpes zoster [Unknown]
  - Renal disorder [Unknown]
  - Urinary retention [Unknown]
  - Tuberculosis [Unknown]
  - Swelling [Unknown]

NARRATIVE: CASE EVENT DATE: 201507
